FAERS Safety Report 8901099 (Version 1)
Quarter: 2012Q4

REPORT INFORMATION
  Report Type: 
  Country: ZA (occurrence: ZA)
  Receive Date: 20121109
  Receipt Date: 20121109
  Transmission Date: 20130627
  Serious: Yes (Death)
  Sender: FDA-Public Use
  Company Number: ZA-GENZYME-CERZ-1002695

PATIENT
  Age: 3 Year
  Sex: Female

DRUGS (1)
  1. CEREZYME [Suspect]
     Indication: GAUCHER^S DISEASE
     Dosage: 30 U/kg, q2w
     Route: 042
     Dates: start: 201109

REACTIONS (2)
  - Pneumonia [Fatal]
  - Respiratory failure [Fatal]
